FAERS Safety Report 11581358 (Version 1)
Quarter: 2015Q4

REPORT INFORMATION
  Report Type: Spontaneous
  Country: US (occurrence: US)
  Receive Date: 20151001
  Receipt Date: 20151001
  Transmission Date: 20160304
  Serious: No
  Sender: FDA-Public Use
  Company Number: US-ROCHE-706676

PATIENT
  Age: 45 Year
  Sex: Female

DRUGS (7)
  1. HYDROCHLOROTHIAZIDE. [Concomitant]
     Active Substance: HYDROCHLOROTHIAZIDE
     Route: 065
  2. PREVACID [Concomitant]
     Active Substance: LANSOPRAZOLE
     Route: 065
  3. PEGASYS [Suspect]
     Active Substance: PEGINTERFERON ALFA-2A
     Indication: HEPATITIS C
     Route: 058
  4. RIBAVIRIN. [Suspect]
     Active Substance: RIBAVIRIN
     Indication: HEPATITIS C
     Route: 048
  5. ZONISAMIDE. [Concomitant]
     Active Substance: ZONISAMIDE
     Route: 065
  6. MOTRIN [Concomitant]
     Active Substance: IBUPROFEN
     Route: 065
  7. EFFEXOR [Concomitant]
     Active Substance: VENLAFAXINE HYDROCHLORIDE
     Route: 065

REACTIONS (7)
  - Headache [Unknown]
  - Decreased appetite [Unknown]
  - Abdominal pain upper [Not Recovered/Not Resolved]
  - Pyrexia [Not Recovered/Not Resolved]
  - Nausea [Unknown]
  - Fatigue [Not Recovered/Not Resolved]
  - Somnolence [Not Recovered/Not Resolved]

NARRATIVE: CASE EVENT DATE: 20100522
